FAERS Safety Report 14850935 (Version 2)
Quarter: 2018Q2

REPORT INFORMATION
  Report Type: Spontaneous
  Country: CA (occurrence: CA)
  Receive Date: 20180506
  Receipt Date: 20180510
  Transmission Date: 20180711
  Serious: Yes (Other)
  Sender: FDA-Public Use
  Company Number: CA-BEH-2017084932

PATIENT
  Age: 48 Year
  Sex: Male
  Weight: 106.8 kg

DRUGS (17)
  1. PRIVIGEN [Suspect]
     Active Substance: HUMAN IMMUNOGLOBULIN G
     Dosage: UNK
     Route: 065
     Dates: start: 20170803, end: 20170803
  2. PRIVIGEN [Suspect]
     Active Substance: HUMAN IMMUNOGLOBULIN G
     Dosage: UNK
     Route: 065
     Dates: start: 20170802, end: 20170802
  3. PRIVIGEN [Suspect]
     Active Substance: HUMAN IMMUNOGLOBULIN G
     Dosage: 60 G, UNK, 6G/HR
     Route: 042
     Dates: start: 20170808
  4. REACTINE                           /00884302/ [Concomitant]
     Active Substance: CETIRIZINE HYDROCHLORIDE
     Indication: PREMEDICATION
     Dosage: 20 MG, TOT
     Route: 048
     Dates: start: 20170808
  5. PRIVIGEN [Suspect]
     Active Substance: HUMAN IMMUNOGLOBULIN G
     Dosage: UNK
     Route: 065
     Dates: start: 20170802, end: 20170802
  6. PREDNISONE. [Concomitant]
     Active Substance: PREDNISONE
     Indication: PREMEDICATION
     Dosage: 60 MG, TOT
     Route: 048
     Dates: start: 20170808
  7. PREDNISONE. [Concomitant]
     Active Substance: PREDNISONE
     Indication: NECROTISING MYOSITIS
     Route: 065
  8. BISPHOSPHONATES [Concomitant]
     Active Substance: UNSPECIFIED INGREDIENT
     Indication: NECROTISING MYOSITIS
     Route: 065
  9. ENGERIX-B [Concomitant]
     Active Substance: HEPATITIS B VIRUS SUBTYPE ADW2 HBSAG SURFACE PROTEIN ANTIGEN
     Dosage: 20 ?G, UNK
     Route: 030
     Dates: start: 20170802
  10. PRIVIGEN [Suspect]
     Active Substance: HUMAN IMMUNOGLOBULIN G
     Dosage: UNK
     Route: 065
     Dates: start: 20170803, end: 20170803
  11. PRIVIGEN [Suspect]
     Active Substance: HUMAN IMMUNOGLOBULIN G
     Dosage: UNK
     Route: 065
     Dates: start: 20170802, end: 20170802
  12. FOLIC ACID. [Concomitant]
     Active Substance: FOLIC ACID
     Indication: NECROTISING MYOSITIS
  13. PRIVIGEN [Suspect]
     Active Substance: HUMAN IMMUNOGLOBULIN G
     Indication: NECROTISING MYOSITIS
     Dosage: 3 VIALS COMPLETED
     Route: 065
     Dates: start: 20170803, end: 20170803
  14. CALCIUM [Concomitant]
     Active Substance: CALCIUM
     Indication: NECROTISING MYOSITIS
     Route: 065
  15. PRIVIGEN [Suspect]
     Active Substance: HUMAN IMMUNOGLOBULIN G
     Dosage: 60 G, OD
     Route: 042
  16. METHOTREXATE. [Concomitant]
     Active Substance: METHOTREXATE
     Indication: NECROTISING MYOSITIS
     Route: 065
  17. TUBERCULIN PPD [Concomitant]
     Active Substance: TUBERCULIN PURIFIED PROTEIN DERIVATIVE
     Dosage: 0.1 ML, UNK, 5TU
     Route: 023
     Dates: start: 20170802

REACTIONS (17)
  - Limb discomfort [Unknown]
  - Catheter site related reaction [Unknown]
  - Feeling hot [Recovered/Resolved]
  - Chills [Recovered/Resolved]
  - Musculoskeletal stiffness [Recovered/Resolved]
  - Pyrexia [Recovered/Resolved]
  - Neck pain [Unknown]
  - Erythema [Recovered/Resolved]
  - Meningitis aseptic [Recovered/Resolved]
  - Headache [Recovered/Resolved]
  - Pain in extremity [Unknown]
  - Tachycardia [Recovered/Resolved]
  - Back pain [Unknown]
  - Photophobia [Recovered/Resolved]
  - Nausea [Recovered/Resolved]
  - Flushing [Recovered/Resolved]
  - Somnolence [Recovered/Resolved]

NARRATIVE: CASE EVENT DATE: 20170803
